FAERS Safety Report 5618550-9 (Version None)
Quarter: 2008Q1

REPORT INFORMATION
  Report Type: 
  Country: None (occurrence: None)
  Receive Date: 20080207
  Receipt Date: 20080129
  Transmission Date: 20080703
  Serious: Yes (Other)
  Sender: FDA-Public Use
  Company Number: FR-ROCHE-542025

PATIENT
  Age: 70 Year
  Sex: Female
  Weight: 45 kg

DRUGS (6)
  1. BONIVA [Suspect]
     Indication: OSTEOPOROSIS POSTMENOPAUSAL
     Route: 048
     Dates: start: 20070330, end: 20071008
  2. NEXIUM [Concomitant]
     Dosage: DRUG REPORTED AS ^INEXIUM 40^. DOSAGE REPORTED AS ^1 DOSE QD^
     Route: 048
     Dates: start: 20070626, end: 20071008
  3. INIPOMP [Concomitant]
     Dosage: DRUG REPORTED AS ^INIPOMP 20^. DOSAGE REPORTED AS ^1 TABLET QD^
     Route: 048
     Dates: start: 20060713, end: 20071008
  4. FENOFIBRATE [Concomitant]
     Dosage: DRUG REPORTED AS ^FENOFIBRATE 200^, DOSAGE REPORTED AS ^1 CAPS QD^
     Route: 048
     Dates: start: 20011024, end: 20071008
  5. STRUCTUM [Concomitant]
     Dosage: DOSAGE REPORTED AS ^2 CAPS QD^
     Route: 048
     Dates: start: 20060707, end: 20071008
  6. STRESAM [Concomitant]
     Indication: ANXIETY
     Dosage: DOSAGE REPORTED AS ^2 CAPS QD^
     Route: 048
     Dates: start: 20070412

REACTIONS (1)
  - CYTOLYTIC HEPATITIS [None]
